FAERS Safety Report 20107532 (Version 2)
Quarter: 2021Q4

REPORT INFORMATION
  Report Type: Spontaneous
  Country: FR (occurrence: FR)
  Receive Date: 20211124
  Receipt Date: 20211202
  Transmission Date: 20220304
  Serious: Yes (Hospitalization, Other)
  Sender: FDA-Public Use
  Company Number: None

PATIENT
  Age: 86 Year
  Sex: Female
  Weight: 54.7 kg

DRUGS (22)
  1. MICONAZOLE NITRATE [Suspect]
     Active Substance: MICONAZOLE NITRATE
     Indication: Oral fungal infection
     Dosage: 50 MG, QD
     Route: 048
     Dates: start: 20211013, end: 20211014
  2. IRBESARTAN [Interacting]
     Active Substance: IRBESARTAN
     Dosage: 150 MG, QD
     Route: 048
     Dates: start: 20210929, end: 20211019
  3. OXYCODONE [Suspect]
     Active Substance: OXYCODONE
     Dosage: 5 MG, QD
     Route: 048
     Dates: start: 20211015, end: 20211026
  4. RAMIPRIL [Suspect]
     Active Substance: RAMIPRIL
     Dosage: 2.5 MG, QD
     Route: 048
     Dates: start: 20211019, end: 20211026
  5. AMOXICILLIN [Suspect]
     Active Substance: AMOXICILLIN
     Dosage: 1 G, TID
     Route: 048
     Dates: start: 20211020, end: 20211024
  6. AMIODARONE HYDROCHLORIDE [Suspect]
     Active Substance: AMIODARONE HYDROCHLORIDE
     Dosage: 4-0-0 (D1), 2-0-0 (1 WEEK), 1-0-0 (MAINTENANCE)
     Route: 048
     Dates: start: 20211019, end: 20211019
  7. AMIODARONE HYDROCHLORIDE [Suspect]
     Active Substance: AMIODARONE HYDROCHLORIDE
     Dosage: 4-0-0 (D1), 2-0-0 (1 WEEK), 1-0-0 (MAINTENANCE)
     Route: 048
     Dates: start: 20211020, end: 20211025
  8. FUROSEMIDE [Suspect]
     Active Substance: FUROSEMIDE
     Dosage: 40 MG, QD
     Route: 048
     Dates: start: 20211006, end: 20211012
  9. FUROSEMIDE [Suspect]
     Active Substance: FUROSEMIDE
     Dosage: 80 MG, QD
     Route: 048
     Dates: start: 20211012
  10. FUROSEMIDE [Suspect]
     Active Substance: FUROSEMIDE
     Dosage: 40 MG, QD
     Route: 048
     Dates: start: 20211014, end: 20211015
  11. FUROSEMIDE [Suspect]
     Active Substance: FUROSEMIDE
     Dosage: 40 MG, QD
     Route: 048
     Dates: end: 20211026
  12. BISOPROLOL [Suspect]
     Active Substance: BISOPROLOL
     Route: 065
  13. HYDROCHLOROTHIAZIDE [Suspect]
     Active Substance: HYDROCHLOROTHIAZIDE
     Dosage: 1/2 TABLET PER DAY
     Route: 048
  14. ACETAMINOPHEN [Suspect]
     Active Substance: ACETAMINOPHEN
     Dosage: 1 G, QD (3 TABLETS PER DAY)
     Route: 048
     Dates: end: 20211014
  15. PANTOPRAZOLE [Suspect]
     Active Substance: PANTOPRAZOLE
     Dosage: 40 MG, QD (INJECTED)
     Dates: end: 20211004
  16. SPIRONOLACTONE [Suspect]
     Active Substance: SPIRONOLACTONE
     Dosage: 1 DF, QD
     Route: 048
  17. APIXABAN [Interacting]
     Active Substance: APIXABAN
     Dosage: 2.5 MG, BID
     Route: 048
     Dates: start: 20211004, end: 20211026
  18. AMPHOTERICIN B [Suspect]
     Active Substance: AMPHOTERICIN B
     Indication: Oral fungal infection
     Dosage: 15 ML, TID
     Route: 002
     Dates: start: 20211014, end: 20211023
  19. COVID-19 VACCINE NOS [Suspect]
     Active Substance: COVID-19 VACCINE NOS
     Indication: COVID-19 immunisation
     Dosage: 1 DF, TOTAL
     Route: 030
     Dates: start: 20211004, end: 20211004
  20. COMIRNATY [Suspect]
     Active Substance: TOZINAMERAN
     Dosage: 1 DF, 1 TOTAL
     Route: 030
     Dates: start: 20211004, end: 20211004
  21. METFORMIN [Suspect]
     Active Substance: METFORMIN HYDROCHLORIDE
     Dosage: 2 DF, QD (2 TABLETS PER DAY)
     Route: 048
  22. INSULIN ASPART [Suspect]
     Active Substance: INSULIN ASPART
     Dosage: UNK UNK, TID
     Route: 065

REACTIONS (2)
  - Hepatic cytolysis [Not Recovered/Not Resolved]
  - Hepatic enzyme increased [Not Recovered/Not Resolved]

NARRATIVE: CASE EVENT DATE: 20211021
